FAERS Safety Report 24202031 (Version 2)
Quarter: 2025Q2

REPORT INFORMATION
  Report Type: Spontaneous
  Country: AT (occurrence: AT)
  Receive Date: 20240812
  Receipt Date: 20250501
  Transmission Date: 20250717
  Serious: Yes (Other)
  Sender: BRISTOL-MYERS SQUIBB COMPANY
  Company Number: AT-Accord-438975

PATIENT
  Sex: Male

DRUGS (2)
  1. AZACITIDINE [Suspect]
     Active Substance: AZACITIDINE
     Indication: VEXAS syndrome
  2. CORTISONE [Concomitant]
     Active Substance: CORTISONE
     Indication: VEXAS syndrome

REACTIONS (2)
  - Off label use [Unknown]
  - Delirium [Unknown]
